FAERS Safety Report 5017211-7 (Version None)
Quarter: 2006Q2

REPORT INFORMATION
  Report Type: 
  Country: None (occurrence: None)
  Receive Date: 20060602
  Receipt Date: 20060525
  Transmission Date: 20061013
  Serious: Yes (Death)
  Sender: FDA-Public Use
  Company Number: US-ABBOTT-06P-163-0334236-00

PATIENT
  Sex: Female
  Weight: 65.376 kg

DRUGS (1)
  1. HYTRIN [Suspect]
     Indication: HYPERTENSION
     Route: 048
     Dates: start: 20000101, end: 20060516

REACTIONS (3)
  - CARDIAC ARREST [None]
  - RESPIRATORY DISTRESS [None]
  - SCLERODERMA [None]
